FAERS Safety Report 16625956 (Version 2)
Quarter: 2019Q3

REPORT INFORMATION
  Report Type: Spontaneous
  Country: None (occurrence: MW)
  Receive Date: 20190724
  Receipt Date: 20190821
  Transmission Date: 20191004
  Serious: Yes (Other)
  Sender: FDA-Public Use
  Company Number: MW-POPULATION COUNCIL, INC.-2071252

PATIENT
  Age: 30 Year
  Sex: Female
  Weight: 60 kg

DRUGS (1)
  1. JADELLE [Suspect]
     Active Substance: LEVONORGESTREL
     Indication: CONTRACEPTION
     Route: 059
     Dates: start: 20181003, end: 20190611

REACTIONS (2)
  - Pregnancy with implant contraceptive [None]
  - Drug ineffective [None]

NARRATIVE: CASE EVENT DATE: 20190611
